FAERS Safety Report 14485654 (Version 1)
Quarter: 2018Q1

REPORT INFORMATION
  Report Type: Spontaneous
  Country: HU (occurrence: HU)
  Receive Date: 20180205
  Receipt Date: 20180205
  Transmission Date: 20180509
  Serious: Yes (Hospitalization)
  Sender: FDA-Public Use
  Company Number: PHHY2018HU012713

PATIENT
  Age: 39 Year
  Sex: Male

DRUGS (3)
  1. RIVOTRIL [Concomitant]
     Active Substance: CLONAZEPAM
     Indication: PRODUCT USED FOR UNKNOWN INDICATION
     Route: 065
  2. ZYPADHERA [Suspect]
     Active Substance: OLANZAPINE PAMOATE
     Indication: ACUTE PSYCHOSIS
     Dosage: 300 MG, UNK
     Route: 030
  3. OLANZAPINE. [Suspect]
     Active Substance: OLANZAPINE
     Indication: ACUTE PSYCHOSIS
     Route: 048

REACTIONS (15)
  - Aspartate aminotransferase increased [Unknown]
  - Red blood cell count decreased [Unknown]
  - Haemoglobin decreased [Unknown]
  - Haematocrit decreased [Unknown]
  - Blood lactate dehydrogenase increased [Unknown]
  - Lymphocyte percentage decreased [Unknown]
  - C-reactive protein increased [Unknown]
  - Acute psychosis [Unknown]
  - Agitation [Recovered/Resolved]
  - Neutrophil percentage increased [Unknown]
  - Blood creatine phosphokinase increased [Unknown]
  - Restlessness [Recovered/Resolved]
  - White blood cell count increased [Unknown]
  - Alanine aminotransferase increased [Unknown]
  - Delirium [Recovered/Resolved]

NARRATIVE: CASE EVENT DATE: 20170202
